FAERS Safety Report 11768555 (Version 2)
Quarter: 2015Q4

REPORT INFORMATION
  Report Type: Report from Study
  Country: US (occurrence: US)
  Receive Date: 20151123
  Receipt Date: 20151202
  Transmission Date: 20160304
  Serious: Yes (Hospitalization, Other)
  Sender: FDA-Public Use
  Company Number: US-AMGEN-USASP2015121878

PATIENT
  Age: 60 Year
  Sex: Female

DRUGS (1)
  1. ENBREL [Suspect]
     Active Substance: ETANERCEPT
     Indication: RHEUMATOID ARTHRITIS
     Dosage: 50 MG, QWK
     Route: 065
     Dates: start: 2008

REACTIONS (19)
  - Blister [Unknown]
  - Injection site rash [Unknown]
  - Internal haemorrhage [Unknown]
  - Adverse drug reaction [Unknown]
  - Bacterial infection [Unknown]
  - Epistaxis [Unknown]
  - Wound [Unknown]
  - Pain [Unknown]
  - Tearfulness [Unknown]
  - Infective myositis [Unknown]
  - Contusion [Unknown]
  - Skin exfoliation [Unknown]
  - Injection site pain [Unknown]
  - Injection site pruritus [Unknown]
  - Rheumatoid arthritis [Unknown]
  - Hearing impaired [Unknown]
  - Injection site erythema [Unknown]
  - Hospitalisation [Recovered/Resolved]
  - White blood cell count decreased [Unknown]

NARRATIVE: CASE EVENT DATE: 2015
